FAERS Safety Report 7917286-9 (Version None)
Quarter: 2011Q4

REPORT INFORMATION
  Report Type: 
  Country: None (occurrence: None)
  Receive Date: 20111116
  Receipt Date: 20111103
  Transmission Date: 20120403
  Serious: Yes (Hospitalization)
  Sender: FDA-Public Use
  Company Number: PHHY2011CN097249

PATIENT
  Sex: Male
  Weight: 68 kg

DRUGS (3)
  1. GLEEVEC [Suspect]
     Dosage: 2 DF, PER DAY
     Route: 048
     Dates: end: 20110701
  2. GLEEVEC [Suspect]
     Dosage: 3 DF, PER DAY
     Route: 048
  3. GLEEVEC [Suspect]
     Indication: CHRONIC MYELOID LEUKAEMIA
     Dosage: 4 DF, PER DAY
     Route: 048
     Dates: start: 20090901

REACTIONS (5)
  - DIARRHOEA [None]
  - LEUKOPENIA [None]
  - COMA [None]
  - DRUG RESISTANCE [None]
  - OEDEMA [None]
